FAERS Safety Report 8381415 (Version 5)
Quarter: 2012Q4

REPORT INFORMATION
  Report Type: 
  Country: DK (occurrence: DK)
  Receive Date: 20120131
  Receipt Date: 20120926
  Transmission Date: 20130627
  Serious: Yes (Death, Other)
  Sender: FDA-Public Use
  Company Number: DK-PFIZER INC-2012023917

PATIENT
  Age: 74 Year
  Sex: Male

DRUGS (5)
  1. CHAMPIX [Suspect]
     Indication: SMOKING CESSATION THERAPY
     Dosage: UNK
     Dates: start: 201104, end: 201107
  2. NITROGLYCERIN [Concomitant]
     Dosage: UNK
  3. SYMBICORT TURBOHALER [Concomitant]
     Dosage: UNK
  4. SELO-ZOK [Concomitant]
     Dosage: UNK
  5. MAGNYL ^DAK^ [Concomitant]
     Dosage: UNK

REACTIONS (3)
  - Coronary artery thrombosis [Fatal]
  - Cardiac arrest [Fatal]
  - Arteriosclerosis [Fatal]
